FAERS Safety Report 4397076-7 (Version None)
Quarter: 2004Q3

REPORT INFORMATION
  Report Type: 
  Country: None (occurrence: None)
  Receive Date: 20040708
  Receipt Date: 20040705
  Transmission Date: 20050211
  Serious: Yes (Hospitalization)
  Sender: FDA-Public Use
  Company Number: 200410162BSV

PATIENT
  Age: 89 Year
  Sex: Male

DRUGS (11)
  1. CIPROPLOXACIN [Suspect]
     Indication: URINARY TRACT INFECTION
     Dosage: ORAL
     Route: 048
     Dates: start: 20040401
  2. SELOKEN [Concomitant]
  3. FOLACIN [Concomitant]
  4. LEVAXIN [Concomitant]
  5. PROPAVAN [Concomitant]
  6. BEHEPAN [Concomitant]
  7. FUROSEMIDE [Concomitant]
  8. ALVEDON [Concomitant]
  9. SOBRIL [Concomitant]
  10. TROMBYL [Concomitant]
  11. ZYPREXA [Concomitant]

REACTIONS (4)
  - CONFUSIONAL STATE [None]
  - GENERAL PHYSICAL HEALTH DETERIORATION [None]
  - PEMPHIGUS [None]
  - SOMNOLENCE [None]
